FAERS Safety Report 15790991 (Version 2)
Quarter: 2019Q1

REPORT INFORMATION
  Report Type: Report from Study
  Country: JP (occurrence: JP)
  Receive Date: 20190104
  Receipt Date: 20190322
  Transmission Date: 20190417
  Serious: Yes (Death, Other)
  Sender: FDA-Public Use
  Company Number: JP-GILEAD-2017-0281742

PATIENT
  Sex: Male

DRUGS (15)
  1. BARACLUDE [Concomitant]
     Active Substance: ENTECAVIR
     Dosage: UNK
  2. BARACLUDE [Concomitant]
     Active Substance: ENTECAVIR
     Dosage: UNK
  3. URSODEOXYCHOLIC ACID [Concomitant]
     Active Substance: URSODIOL
     Dosage: UNK
  4. SILECE [Concomitant]
     Active Substance: FLUNITRAZEPAM
     Dosage: UNK
  5. NEXIUM [Concomitant]
     Active Substance: ESOMEPRAZOLE MAGNESIUM
     Dosage: UNK
  6. CAMOSTAT MESILATE [Concomitant]
     Active Substance: CAMOSTAT MESYLATE
     Dosage: UNK
  7. SILECE [Concomitant]
     Active Substance: FLUNITRAZEPAM
     Dosage: UNK
  8. LIPACREON [Concomitant]
     Active Substance: PANCRELIPASE
     Dosage: UNK
  9. CAMOSTAT MESILATE [Concomitant]
     Active Substance: CAMOSTAT MESYLATE
     Dosage: UNK
  10. BARACLUDE [Concomitant]
     Active Substance: ENTECAVIR
     Indication: CHRONIC HEPATITIS B
     Dosage: UNK
  11. SILECE [Concomitant]
     Active Substance: FLUNITRAZEPAM
     Dosage: UNK
  12. LIPACREON [Concomitant]
     Active Substance: PANCRELIPASE
     Dosage: UNK
  13. URSODEOXYCHOLIC ACID [Concomitant]
     Active Substance: URSODIOL
     Dosage: UNK
  14. TENOFOVIR DISOPROXIL FUMARATE. [Suspect]
     Active Substance: TENOFOVIR DISOPROXIL FUMARATE
     Indication: CHRONIC HEPATITIS B
     Dosage: 300 MG, QD
     Route: 048
     Dates: start: 20150623, end: 20180627
  15. LIPACREON [Concomitant]
     Active Substance: PANCRELIPASE
     Dosage: UNK

REACTIONS (1)
  - Pneumonia [Fatal]
